FAERS Safety Report 18658848 (Version 3)
Quarter: 2021Q1

REPORT INFORMATION
  Report Type: Spontaneous
  Country: GB (occurrence: GB)
  Receive Date: 20201224
  Receipt Date: 20210225
  Transmission Date: 20210419
  Serious: Yes (Other)
  Sender: FDA-Public Use
  Company Number: GB-BIOVITRUM-2020GB7898

PATIENT
  Age: 46 Year
  Sex: Male

DRUGS (38)
  1. TRAMADOL. [Concomitant]
     Active Substance: TRAMADOL
     Dates: start: 2013
  2. LANSOPRAZOLE. [Concomitant]
     Active Substance: LANSOPRAZOLE
     Dates: start: 2018
  3. LANSOPRAZOLE. [Concomitant]
     Active Substance: LANSOPRAZOLE
     Dates: start: 2019
  4. ZAPAIN [Concomitant]
     Active Substance: ACETAMINOPHEN\CODEINE PHOSPHATE
     Dosage: 30/500 MG
     Dates: start: 2016
  5. ZAPAIN [Concomitant]
     Active Substance: ACETAMINOPHEN\CODEINE PHOSPHATE
     Dosage: 30/500 MG
     Dates: start: 2017
  6. PREGABALIN. [Concomitant]
     Active Substance: PREGABALIN
     Dates: start: 2017
  7. ORFADIN [Suspect]
     Active Substance: NITISINONE
     Dates: start: 2019
  8. SIMVASTATIN. [Concomitant]
     Active Substance: SIMVASTATIN
     Dates: start: 2014
  9. IBUPROFEN. [Concomitant]
     Active Substance: IBUPROFEN
     Dates: start: 2019
  10. ORFADIN [Suspect]
     Active Substance: NITISINONE
     Indication: ALKAPTONURIA
     Dates: start: 2012
  11. LANSOPRAZOLE. [Concomitant]
     Active Substance: LANSOPRAZOLE
     Dates: start: 2015
  12. LANSOPRAZOLE. [Concomitant]
     Active Substance: LANSOPRAZOLE
     Dates: start: 2017
  13. ZAPAIN [Concomitant]
     Active Substance: ACETAMINOPHEN\CODEINE PHOSPHATE
     Dosage: 30/500 MG
     Dates: start: 2018
  14. ZAPAIN [Concomitant]
     Active Substance: ACETAMINOPHEN\CODEINE PHOSPHATE
     Dosage: 30/500
     Dates: start: 2019
  15. COLECALCIFEROL [Concomitant]
     Active Substance: CHOLECALCIFEROL
     Dates: start: 2019
  16. ORFADIN [Suspect]
     Active Substance: NITISINONE
     Dates: start: 2018
  17. TRAMADOL. [Concomitant]
     Active Substance: TRAMADOL
     Dates: start: 2012
  18. ALFUZOSIN [Concomitant]
     Active Substance: ALFUZOSIN
     Dates: start: 2012
  19. ALFUZOSIN [Concomitant]
     Active Substance: ALFUZOSIN
     Dates: start: 2013
  20. ALFUZOSIN [Concomitant]
     Active Substance: ALFUZOSIN
     Dates: start: 2014
  21. LANSOPRAZOLE. [Concomitant]
     Active Substance: LANSOPRAZOLE
     Dates: start: 2016
  22. ORFADIN [Suspect]
     Active Substance: NITISINONE
     Dates: start: 2013
  23. LANSOPRAZOLE. [Concomitant]
     Active Substance: LANSOPRAZOLE
     Dates: start: 2012
  24. LANSOPRAZOLE. [Concomitant]
     Active Substance: LANSOPRAZOLE
     Dates: start: 2014
  25. HUX D3 [Concomitant]
     Dates: start: 2016
  26. ORFADIN [Suspect]
     Active Substance: NITISINONE
     Dates: start: 2017
  27. SIMVASTATIN. [Concomitant]
     Active Substance: SIMVASTATIN
     Dates: start: 2013
  28. SIMVASTATIN. [Concomitant]
     Active Substance: SIMVASTATIN
     Dates: start: 2015
  29. ZAPAIN [Concomitant]
     Active Substance: ACETAMINOPHEN\CODEINE PHOSPHATE
     Dosage: 30/500
     Dates: start: 2014
  30. ZAPAIN [Concomitant]
     Active Substance: ACETAMINOPHEN\CODEINE PHOSPHATE
     Dosage: 30/500 MG
     Dates: start: 2015
  31. ADCAL D3 [Concomitant]
     Active Substance: CALCIUM CARBONATE\CHOLECALCIFEROL
     Dates: start: 2015
  32. ORFADIN [Suspect]
     Active Substance: NITISINONE
     Dates: start: 2014
  33. ORFADIN [Suspect]
     Active Substance: NITISINONE
     Dates: start: 2015
  34. SIMVASTATIN. [Concomitant]
     Active Substance: SIMVASTATIN
     Dates: start: 2012
  35. LIDOCAINE PATCHES [Concomitant]
     Active Substance: LIDOCAINE
  36. ORFADIN [Suspect]
     Active Substance: NITISINONE
     Dates: start: 2016
  37. LANSOPRAZOLE. [Concomitant]
     Active Substance: LANSOPRAZOLE
     Dates: start: 2013
  38. PREGABALIN. [Concomitant]
     Active Substance: PREGABALIN
     Dates: start: 2018

REACTIONS (3)
  - Amino acid level increased [Not Recovered/Not Resolved]
  - Lenticular opacities [Not Recovered/Not Resolved]
  - Conjunctival cyst [Not Recovered/Not Resolved]

NARRATIVE: CASE EVENT DATE: 2013
